FAERS Safety Report 15879935 (Version 1)
Quarter: 2019Q1

REPORT INFORMATION
  Report Type: Spontaneous
  Country: GB (occurrence: GB)
  Receive Date: 20190128
  Receipt Date: 20190128
  Transmission Date: 20190417
  Serious: Yes (Other)
  Sender: FDA-Public Use
  Company Number: GB-US WORLDMEDS, LLC-E2B_00002844

PATIENT
  Sex: Male

DRUGS (11)
  1. PRAMIPEXOLE. [Concomitant]
     Active Substance: PRAMIPEXOLE
     Dosage: 0.52 MG, DAILY
     Route: 065
  2. PRAMIPEXOLE. [Concomitant]
     Active Substance: PRAMIPEXOLE
     Indication: PRODUCT USED FOR UNKNOWN INDICATION
     Dosage: 2.1 MG, DAILY
  3. VESICARE [Concomitant]
     Active Substance: SOLIFENACIN SUCCINATE
     Indication: PRODUCT USED FOR UNKNOWN INDICATION
  4. XADAGO [Suspect]
     Active Substance: SAFINAMIDE MESYLATE
     Dosage: 100 MG, DAILY
     Route: 065
  5. XADAGO [Suspect]
     Active Substance: SAFINAMIDE MESYLATE
     Indication: PARKINSON^S DISEASE
     Dosage: 50 MG, DAILY FOR 4 WEEKS
     Route: 065
  6. STALEVO [Concomitant]
     Active Substance: CARBIDOPA\ENTACAPONE\LEVODOPA
     Indication: PRODUCT USED FOR UNKNOWN INDICATION
     Dosage: 150 MG, TID (AT 7AM, 10AM AND 1PM)
  7. RIVASTIGMINE. [Concomitant]
     Active Substance: RIVASTIGMINE
     Indication: PRODUCT USED FOR UNKNOWN INDICATION
     Dosage: 1.5 MG, BID (AS A PART OF TRIAL STARTED FIVE YEARS AGO)
     Route: 065
  8. FLUDROCORTISONE [Concomitant]
     Active Substance: FLUDROCORTISONE
     Dosage: 0.5 MG, DAILY
  9. MADOPAR [Concomitant]
     Active Substance: BENSERAZIDE HYDROCHLORIDE\LEVODOPA
     Indication: PRODUCT USED FOR UNKNOWN INDICATION
     Dosage: 62.5 MG, PRN UP TO 4-5 TIMES DAILY
     Route: 065
  10. STALEVO [Concomitant]
     Active Substance: CARBIDOPA\ENTACAPONE\LEVODOPA
     Dosage: 125 MG, BID (AT 4PM  AND 8PM)
     Route: 065
  11. PAMSVAX [Concomitant]
     Active Substance: TAMSULOSIN HYDROCHLORIDE
     Indication: PRODUCT USED FOR UNKNOWN INDICATION
     Dosage: 400 MG, DAILY

REACTIONS (9)
  - Orthostatic hypotension [Recovering/Resolving]
  - Muscle rigidity [Recovering/Resolving]
  - Dyspnoea exertional [Unknown]
  - Dyskinesia [Recovering/Resolving]
  - Syncope [Recovering/Resolving]
  - Dizziness [Unknown]
  - Hypotension [Recovered/Resolved]
  - Bradykinesia [Unknown]
  - Fall [Recovering/Resolving]
